FAERS Safety Report 14127730 (Version 1)
Quarter: 2017Q4

REPORT INFORMATION
  Report Type: Other
  Country: DE (occurrence: DE)
  Receive Date: 20171026
  Receipt Date: 20171026
  Transmission Date: 20180321
  Serious: Yes (Life-Threatening, Other)
  Sender: FDA-Public Use
  Company Number: DE-EMCURE PHARMACEUTICALS LIMITED-2031513

PATIENT
  Age: 41 Year
  Sex: Female

DRUGS (1)
  1. CIDOFOVIR DIHYDRATE [Suspect]
     Active Substance: CIDOFOVIR
     Indication: ADENOVIRUS INFECTION
     Route: 042

REACTIONS (1)
  - Drug ineffective for unapproved indication [Unknown]
